FAERS Safety Report 19273260 (Version 4)
Quarter: 2021Q3

REPORT INFORMATION
  Report Type: Spontaneous
  Country: RS (occurrence: RS)
  Receive Date: 20210519
  Receipt Date: 20210916
  Transmission Date: 20211014
  Serious: Yes (Hospitalization, Other)
  Sender: FDA-Public Use
  Company Number: RS-NOVOPROD-812320

PATIENT
  Sex: Male

DRUGS (2)
  1. NOVORAPID [Concomitant]
     Active Substance: INSULIN ASPART
     Indication: DIABETES MELLITUS
     Dosage: 18 IU, QD (6?6?6)
     Route: 058
     Dates: start: 20210409
  2. TRESIBA [Suspect]
     Active Substance: INSULIN DEGLUDEC
     Indication: DIABETES MELLITUS
     Dosage: 8 IU, QD (EVENING 22H)
     Route: 058
     Dates: start: 20210409

REACTIONS (2)
  - Blood glucose fluctuation [Unknown]
  - Incorrect dose administered by device [Unknown]
